FAERS Safety Report 10108586 (Version 10)
Quarter: 2015Q2

REPORT INFORMATION
  Report Type: Report from Study
  Country: US (occurrence: US)
  Receive Date: 20140425
  Receipt Date: 20150608
  Transmission Date: 20150821
  Serious: Yes (Hospitalization, Other)
  Sender: FDA-Public Use
  Company Number: US-BIOGENIDEC-2014BI036796

PATIENT
  Age: 44 Year
  Sex: Female

DRUGS (4)
  1. AVONEX [Suspect]
     Active Substance: INTERFERON BETA-1A
     Indication: MULTIPLE SCLEROSIS
     Route: 030
     Dates: start: 201304
  2. AVONEX [Suspect]
     Active Substance: INTERFERON BETA-1A
     Indication: MULTIPLE SCLEROSIS
     Route: 030
     Dates: start: 20130612
  3. ASPIRIN. [Concomitant]
     Active Substance: ASPIRIN
  4. AVONEX [Suspect]
     Active Substance: INTERFERON BETA-1A
     Indication: MULTIPLE SCLEROSIS
     Route: 030
     Dates: start: 20130904

REACTIONS (24)
  - Parosmia [Unknown]
  - Limb discomfort [Not Recovered/Not Resolved]
  - General symptom [Not Recovered/Not Resolved]
  - Arterial occlusive disease [Unknown]
  - Aphasia [Not Recovered/Not Resolved]
  - Hypoaesthesia [Recovered/Resolved]
  - Decreased appetite [Recovered/Resolved]
  - Memory impairment [Not Recovered/Not Resolved]
  - Coma [Recovered/Resolved]
  - Asthenia [Unknown]
  - Nausea [Not Recovered/Not Resolved]
  - Haemoptysis [Not Recovered/Not Resolved]
  - Somnolence [Recovered/Resolved]
  - Hypothyroidism [Unknown]
  - Mobility decreased [Not Recovered/Not Resolved]
  - Fall [Recovered/Resolved]
  - Pain in extremity [Recovered/Resolved]
  - Stress [Unknown]
  - Cerebrovascular accident [Recovered/Resolved]
  - Cerebral thrombosis [Recovered/Resolved with Sequelae]
  - Hyperthyroidism [Unknown]
  - Feeding disorder [Not Recovered/Not Resolved]
  - Muscular weakness [Not Recovered/Not Resolved]
  - Vomiting [Not Recovered/Not Resolved]

NARRATIVE: CASE EVENT DATE: 2013
